FAERS Safety Report 4544558-0 (Version None)
Quarter: 2005Q1

REPORT INFORMATION
  Report Type: 
  Country: None (occurrence: None)
  Receive Date: 20050104
  Receipt Date: 20041227
  Transmission Date: 20050727
  Serious: Yes (Death, Other)
  Sender: FDA-Public Use
  Company Number: 04-12-1810

PATIENT
  Age: 73 Year
  Sex: Male

DRUGS (1)
  1. CLOZAPINE [Suspect]
     Dosage: 125 MG ORAL
     Route: 048
     Dates: start: 20001023, end: 20041201

REACTIONS (1)
  - CARDIOPULMONARY FAILURE [None]
